FAERS Safety Report 5968238-X (Version None)
Quarter: 2008Q4

REPORT INFORMATION
  Report Type: 
  Country: None (occurrence: None)
  Receive Date: 20081126
  Receipt Date: 20081124
  Transmission Date: 20090506
  Serious: Yes (Hospitalization)
  Sender: FDA-Public Use
  Company Number: D0059604A

PATIENT
  Sex: Female
  Weight: 70 kg

DRUGS (4)
  1. ACYCLOVIR [Suspect]
     Indication: ENCEPHALITIS HERPES
     Dosage: 6750MG CUMULATIVE DOSE
     Route: 042
     Dates: start: 20080904, end: 20080907
  2. ROCEPHIN [Suspect]
     Dosage: 24000MG CUMULATIVE DOSE
     Route: 042
     Dates: start: 20080904, end: 20080911
  3. CYMEVEN [Suspect]
     Indication: ENCEPHALITIS HERPES
     Dosage: 3150MG CUMULATIVE DOSE
     Route: 042
     Dates: start: 20080906, end: 20080911
  4. MULTIPLE MEDICATION [Concomitant]
     Route: 065

REACTIONS (2)
  - LONG QT SYNDROME [None]
  - TORSADE DE POINTES [None]
